FAERS Safety Report 9018311 (Version 1)
Quarter: 2013Q1

REPORT INFORMATION
  Report Type: Spontaneous
  Country: US (occurrence: None)
  Receive Date: 20130111
  Receipt Date: 20130111
  Transmission Date: 20140127
  Serious: Yes (Hospitalization)
  Sender: FDA-Public Use
  Company Number: None

PATIENT
  Age: 76 Year
  Sex: Male
  Weight: 78.1 kg

DRUGS (1)
  1. SULFAMETHOXAZOLE/TRIMETHOPRIM [Suspect]
     Indication: INFECTION
     Dosage: 1 TAB 1BID PO
     Route: 048
     Dates: start: 20121218, end: 20121228

REACTIONS (2)
  - Renal failure acute [None]
  - Hyperkalaemia [None]
